FAERS Safety Report 5950576-8 (Version None)
Quarter: 2008Q4

REPORT INFORMATION
  Report Type: 
  Country: None (occurrence: None)
  Receive Date: 20081112
  Receipt Date: 20081030
  Transmission Date: 20090506
  Serious: Yes (Other)
  Sender: FDA-Public Use
  Company Number: CA-ELI_LILLY_AND_COMPANY-CA200808003543

PATIENT
  Age: 84 Year
  Sex: Female

DRUGS (9)
  1. FORTEO [Suspect]
     Indication: OSTEOPOROSIS
     Dosage: 20 UG, EACH MORNING
     Route: 058
     Dates: start: 20080812, end: 20080815
  2. EVISTA [Suspect]
  3. ASPIRIN [Concomitant]
  4. VITAMIN D [Concomitant]
  5. NORVASC [Concomitant]
     Dosage: 5 MG, UNK
  6. RABEPRAZOLE SODIUM [Concomitant]
     Dosage: 20 MG, DAILY (1/D)
  7. VITALUX [Concomitant]
  8. LORAZEPAM [Concomitant]
     Dosage: 0.5 MG, UNK
  9. CALCIUM CARBONATE [Concomitant]

REACTIONS (1)
  - ANGIOEDEMA [None]
